FAERS Safety Report 8850535 (Version 1)
Quarter: 2012Q4

REPORT INFORMATION
  Report Type: 
  Country: US (occurrence: US)
  Receive Date: 20121019
  Receipt Date: 20121019
  Transmission Date: 20130627
  Serious: Yes (Other)
  Sender: FDA-Public Use
  Company Number: CHPA2012US021416

PATIENT
  Age: 60 Year
  Sex: Male

DRUGS (2)
  1. BENEFIBER STICK PACKS [Suspect]
     Indication: POLYP COLORECTAL
     Dosage: 2-3 DF daily
     Route: 048
  2. BENEFIBER STICK PACKS [Suspect]
     Dosage: 2-3 DF daily
     Route: 048

REACTIONS (5)
  - Gastrooesophageal reflux disease [Not Recovered/Not Resolved]
  - Cough [Not Recovered/Not Resolved]
  - Diarrhoea [Unknown]
  - Therapeutic response unexpected [Unknown]
  - Off label use [Unknown]
